FAERS Safety Report 14250695 (Version 3)
Quarter: 2018Q3

REPORT INFORMATION
  Report Type: Spontaneous
  Country: US (occurrence: US)
  Receive Date: 20171205
  Receipt Date: 20180822
  Transmission Date: 20181010
  Serious: No
  Sender: FDA-Public Use
  Company Number: US-PFIZER INC-2017516054

PATIENT
  Age: 65 Year
  Sex: Female
  Weight: 73.47 kg

DRUGS (8)
  1. BUPROPION. [Concomitant]
     Active Substance: BUPROPION
     Dosage: UNK
     Dates: start: 20140317, end: 20150630
  2. DICYCLOMINE [Concomitant]
     Active Substance: DICYCLOMINE HYDROCHLORIDE
     Dosage: UNK
     Dates: start: 20140820, end: 20140930
  3. METFORMIN [Concomitant]
     Active Substance: METFORMIN HYDROCHLORIDE
     Dosage: UNK
     Dates: start: 20140612
  4. NEOSAR [Concomitant]
     Active Substance: CYCLOPHOSPHAMIDE
     Indication: CHEMOTHERAPY
     Dosage: UNK
  5. TAXOTERE [Suspect]
     Active Substance: DOCETAXEL
     Indication: BREAST CANCER FEMALE
     Dosage: UNK, CYCLIC (EVERY 3 WEEKS, 4 CYCLES)
     Dates: start: 20140901, end: 20141121
  6. LOSARTAN. [Concomitant]
     Active Substance: LOSARTAN
     Dosage: UNK
     Dates: start: 20130917
  7. LOVASTATIN. [Concomitant]
     Active Substance: LOVASTATIN
     Dosage: UNK
     Dates: start: 20140715
  8. ASPIRIN. [Concomitant]
     Active Substance: ASPIRIN
     Dosage: UNK
     Dates: start: 201210

REACTIONS (5)
  - Hair texture abnormal [Unknown]
  - Hair disorder [Unknown]
  - Hair colour changes [Unknown]
  - Alopecia [Not Recovered/Not Resolved]
  - Madarosis [Not Recovered/Not Resolved]

NARRATIVE: CASE EVENT DATE: 201505
